FAERS Safety Report 9613580 (Version 2)
Quarter: 2014Q1

REPORT INFORMATION
  Report Type: Spontaneous
  Country: GB (occurrence: None)
  Receive Date: 20131008
  Receipt Date: 20140124
  Transmission Date: 20141002
  Serious: Yes (Other)
  Sender: FDA-Public Use
  Company Number: KAD201309-001289

PATIENT
  Age: 54 Year
  Sex: Male

DRUGS (4)
  1. RIBAVIRIN [Suspect]
     Indication: HEPATITIS C
     Route: 048
     Dates: start: 20121122
  2. INCIVO [Suspect]
     Indication: HEPATITIS C
     Dosage: TABLET, 750 MG, THRICE DAILY, ORAL
     Route: 048
     Dates: start: 20121122, end: 20130214
  3. PEGINTERFERON ALFA-2B [Suspect]
     Indication: HEPATITIS C
     Dosage: INJECTION, ONCE WEEKLY, SUBCUTANEOUS
     Route: 058
     Dates: start: 20121122
  4. CHLORPHENAMINE [Suspect]
     Indication: HEPATITIS C
     Route: 048

REACTIONS (6)
  - Rash [None]
  - Rash erythematous [None]
  - Rash pruritic [None]
  - Rash vesicular [None]
  - Rash [None]
  - Cheilitis [None]
